FAERS Safety Report 7888574-X (Version None)
Quarter: 2011Q4

REPORT INFORMATION
  Report Type: 
  Country: None (occurrence: None)
  Receive Date: 20111103
  Receipt Date: 20111101
  Transmission Date: 20120403
  Serious: No
  Sender: FDA-Public Use
  Company Number: US-PFIZER INC-2011228560

PATIENT
  Sex: Female
  Weight: 46.712 kg

DRUGS (7)
  1. HYDROCHLOROTHIAZIDE [Concomitant]
     Dosage: UNK
  2. CHANTIX [Suspect]
     Dosage: UNK
     Route: 048
     Dates: start: 20110901, end: 20110901
  3. CHANTIX [Suspect]
     Dosage: 1 MG, 2X/DAY
     Route: 048
     Dates: start: 20110901
  4. SYNTHROID [Concomitant]
     Indication: THYROID DISORDER
     Dosage: 5 MG, DAILY
     Route: 048
  5. TAMOXIFEN [Concomitant]
     Dosage: 100 MG, DAILY
  6. VITAMIN D [Concomitant]
     Dosage: UNK
  7. CHANTIX [Suspect]
     Indication: SMOKING CESSATION THERAPY
     Dosage: 0.5 MG, 1X/DAY
     Route: 048
     Dates: start: 20110913, end: 20110901

REACTIONS (6)
  - VOMITING [None]
  - ABNORMAL DREAMS [None]
  - INSOMNIA [None]
  - NAUSEA [None]
  - ARTHROPOD BITE [None]
  - MOOD ALTERED [None]
